FAERS Safety Report 21934477 (Version 1)
Quarter: 2023Q1

REPORT INFORMATION
  Report Type: Other
  Country: US (occurrence: None)
  Receive Date: 20230201
  Receipt Date: 20230201
  Transmission Date: 20230417
  Serious: Yes (Hospitalization)
  Sender: FDA-Public Use
  Company Number: US-ROCHE-3272100

PATIENT
  Age: 58 Year
  Sex: Female

DRUGS (5)
  1. OCREVUS [Suspect]
     Active Substance: OCRELIZUMAB
     Indication: Multiple sclerosis
     Dosage: INFUSE 600MG INTRAVENOUSLY EVERY 24 WEEK(S)
     Route: 042
     Dates: start: 20220615
  2. OCREVUS [Suspect]
     Active Substance: OCRELIZUMAB
     Route: 042
     Dates: start: 201905
  3. KEPPRA [Concomitant]
     Active Substance: LEVETIRACETAM
  4. HYDROCODONE [Concomitant]
     Active Substance: HYDROCODONE
  5. LIORESAL [Concomitant]
     Active Substance: BACLOFEN

REACTIONS (13)
  - Infected skin ulcer [Unknown]
  - Decubitus ulcer [Unknown]
  - Headache [Unknown]
  - Photosensitivity reaction [Unknown]
  - Incontinence [Unknown]
  - Back pain [Unknown]
  - Muscle spasms [Unknown]
  - Muscular weakness [Unknown]
  - Physical disability [Unknown]
  - Coordination abnormal [Unknown]
  - Gait disturbance [Unknown]
  - Asthenia [Unknown]
  - Anxiety [Unknown]
